FAERS Safety Report 9250524 (Version 1)
Quarter: 2013Q1

REPORT INFORMATION
  Report Type: Spontaneous
  Country: US (occurrence: None)
  Receive Date: 20130305
  Receipt Date: 20130305
  Transmission Date: 20140127
  Serious: Yes (Other)
  Sender: FDA-Public Use
  Company Number: 163-21880-12093133

PATIENT
  Age: 52 Year
  Sex: Male
  Weight: 104.33 kg

DRUGS (9)
  1. REVLIMID [Suspect]
     Indication: PLASMA CELL MYELOMA
     Dosage: 21 IN 21 D
     Route: 048
     Dates: start: 201208
  2. ACYCLOVIR [Concomitant]
  3. ARANESP (DARBEPOETIN ALFA) [Concomitant]
  4. ASPIRIN (ACETYLSALICYLIC ACID) [Concomitant]
  5. DEXAMETHASONE [Concomitant]
  6. NEXIUM [Concomitant]
  7. OCUVITE [Concomitant]
  8. POTASSIUM (POTASSIUM) [Concomitant]
  9. PRAVACHOL (PRAVASTATIN SODIUM) [Concomitant]

REACTIONS (1)
  - Deep vein thrombosis [None]
